FAERS Safety Report 25955718 (Version 1)
Quarter: 2025Q4

REPORT INFORMATION
  Report Type: Spontaneous
  Country: US (occurrence: US)
  Receive Date: 20251024
  Receipt Date: 20251024
  Transmission Date: 20260118
  Serious: No
  Sender: LEO PHARM
  Company Number: US-LEO Pharma-383667

PATIENT
  Age: 30 Year
  Sex: Female

DRUGS (1)
  1. ADBRY [Suspect]
     Active Substance: TRALOKINUMAB-LDRM
     Indication: Eczema
     Dosage: TREATMENT REPORTED AS ONGOING
     Route: 058
     Dates: start: 20251002

REACTIONS (4)
  - Eczema [Unknown]
  - Emotional disorder [Unknown]
  - Loss of personal independence in daily activities [Unknown]
  - Insomnia [Unknown]
